FAERS Safety Report 10409338 (Version 1)
Quarter: 2014Q3

REPORT INFORMATION
  Report Type: Spontaneous
  Country: US (occurrence: US)
  Receive Date: 20140826
  Receipt Date: 20140826
  Transmission Date: 20150326
  Serious: Yes (Hospitalization)
  Sender: FDA-Public Use
  Company Number: US-PFIZER INC-2014233500

PATIENT
  Age: 31 Year
  Sex: Male
  Weight: 90.7 kg

DRUGS (7)
  1. DILANTIN-125 [Suspect]
     Active Substance: PHENYTOIN
     Dosage: 300 MG, 2X/DAY
  2. CLONAZEPAM. [Concomitant]
     Active Substance: CLONAZEPAM
     Dosage: 0.25MG IN MORNING AND 0.50MG AT NIGHT
  3. DILANTIN-125 [Suspect]
     Active Substance: PHENYTOIN
     Indication: EPILEPSY
     Dosage: 200 MG, 2X/DAY
  4. DILANTIN-125 [Suspect]
     Active Substance: PHENYTOIN
     Dosage: 60 MG, 2X/DAY
     Dates: start: 2014
  5. LEVETIRACETAM. [Concomitant]
     Active Substance: LEVETIRACETAM
     Dosage: 2250 MG, 2X/DAY
  6. LAMOTRIGINE. [Concomitant]
     Active Substance: LAMOTRIGINE
     Dosage: 250MG IN THE MORNING AND 200MG AT NIGHT)
  7. DILANTIN-125 [Suspect]
     Active Substance: PHENYTOIN
     Dosage: 100 MG, 2X/DAY
     Dates: start: 2014

REACTIONS (4)
  - Convulsion [Unknown]
  - Drug effect incomplete [Unknown]
  - Head discomfort [Unknown]
  - Toxicity to various agents [Unknown]

NARRATIVE: CASE EVENT DATE: 2014
